FAERS Safety Report 25922376 (Version 1)
Quarter: 2025Q4

REPORT INFORMATION
  Report Type: Spontaneous
  Country: US (occurrence: US)
  Receive Date: 20251015
  Receipt Date: 20251015
  Transmission Date: 20260117
  Serious: No
  Sender: Kenvue
  Company Number: US-KENVUE-20250912894

PATIENT
  Age: 4 Year
  Sex: Female

DRUGS (4)
  1. IMODIUM [Suspect]
     Active Substance: LOPERAMIDE HYDROCHLORIDE
     Indication: Diarrhoea
     Dosage: UNK UNK, EVERY OTHER DAY
     Route: 065
     Dates: start: 202509
  2. DAYBUE [Concomitant]
     Active Substance: TROFINETIDE
     Indication: Rett syndrome
     Dosage: 30 MILLILITER, TWICE A DAY
     Route: 048
  3. Banatrol [Concomitant]
     Indication: Rett syndrome
     Route: 065
  4. Yogurt [Concomitant]
     Indication: Rett syndrome
     Route: 065

REACTIONS (1)
  - Constipation [Unknown]

NARRATIVE: CASE EVENT DATE: 20250901
